FAERS Safety Report 10349640 (Version 7)
Quarter: 2014Q4

REPORT INFORMATION
  Report Type: Report from Study
  Country: CA (occurrence: CA)
  Receive Date: 20140730
  Receipt Date: 20141212
  Transmission Date: 20150528
  Serious: Yes (Hospitalization, Other)
  Sender: FDA-Public Use
  Company Number: CA-ROCHE-1429344

PATIENT
  Sex: Male
  Weight: 77 kg

DRUGS (25)
  1. CELEBREX [Concomitant]
     Active Substance: CELECOXIB
  2. VENTOLIN [Concomitant]
     Active Substance: ALBUTEROL SULFATE
  3. CHLORPROMAZINE [Concomitant]
     Active Substance: CHLORPROMAZINE
  4. ALENDRONATE [Concomitant]
     Active Substance: ALENDRONATE SODIUM
  5. ZOPICLONE [Concomitant]
     Active Substance: ZOPICLONE
  6. DIABETA [Concomitant]
     Active Substance: GLYBURIDE
     Indication: DIABETES MELLITUS
     Route: 065
     Dates: start: 201408
  7. FUROSEMIDE. [Concomitant]
     Active Substance: FUROSEMIDE
  8. DILAUDID [Concomitant]
     Active Substance: HYDROMORPHONE HYDROCHLORIDE
  9. CETRIZINE [Concomitant]
     Active Substance: CETIRIZINE HYDROCHLORIDE
  10. DECADRON [Concomitant]
     Active Substance: DEXAMETHASONE
  11. SULFATRIM [Concomitant]
     Active Substance: SULFAMETHOXAZOLE\TRIMETHOPRIM
  12. AVASTIN [Suspect]
     Active Substance: BEVACIZUMAB
     Indication: GLIOBLASTOMA
     Route: 042
     Dates: start: 20140619, end: 20140814
  13. METOCLOPRAMIDE. [Concomitant]
     Active Substance: METOCLOPRAMIDE
  14. PANTOPRAZOLE [Concomitant]
     Active Substance: PANTOPRAZOLE SODIUM
  15. KEPPRA [Concomitant]
     Active Substance: LEVETIRACETAM
  16. APO-SULFATRIM DS [Concomitant]
  17. TYLENOL [Concomitant]
     Active Substance: ACETAMINOPHEN
     Route: 048
     Dates: start: 20140619
  18. BENADRYL [Concomitant]
     Active Substance: DIPHENHYDRAMINE HYDROCHLORIDE
     Route: 048
     Dates: start: 20140619
  19. FLORINEF ACETATE [Suspect]
     Active Substance: FLUDROCORTISONE ACETATE
     Indication: BLOOD PRESSURE INCREASED
     Route: 065
  20. SOLU-MEDROL [Concomitant]
     Active Substance: METHYLPREDNISOLONE SODIUM SUCCINATE
     Route: 042
     Dates: start: 20140619
  21. DOCUSATE SODIUM. [Concomitant]
     Active Substance: DOCUSATE SODIUM
     Indication: CONSTIPATION
     Route: 065
  22. SUPEUDOL [Concomitant]
     Active Substance: OXYCODONE HYDROCHLORIDE
  23. VIGAMOX [Concomitant]
     Active Substance: MOXIFLOXACIN HYDROCHLORIDE
  24. CIPRALEX [Concomitant]
     Active Substance: ESCITALOPRAM OXALATE
  25. METFORMIN [Concomitant]
     Active Substance: METFORMIN HYDROCHLORIDE
     Indication: DIABETES MELLITUS
     Route: 065
     Dates: start: 201408

REACTIONS (11)
  - Constipation [Unknown]
  - Headache [Not Recovered/Not Resolved]
  - Weight decreased [Not Recovered/Not Resolved]
  - Balance disorder [Not Recovered/Not Resolved]
  - Dizziness [Not Recovered/Not Resolved]
  - Malignant neoplasm progression [Unknown]
  - Disturbance in attention [Unknown]
  - Cataract [Not Recovered/Not Resolved]
  - Fatigue [Not Recovered/Not Resolved]
  - Asthenia [Unknown]
  - Blood pressure increased [Unknown]
